FAERS Safety Report 12253627 (Version 1)
Quarter: 2016Q2

REPORT INFORMATION
  Report Type: Spontaneous
  Country: AU (occurrence: AU)
  Receive Date: 20160411
  Receipt Date: 20160411
  Transmission Date: 20160815
  Serious: Yes (Death, Other)
  Sender: FDA-Public Use
  Company Number: AU-ROCHE-1738336

PATIENT
  Sex: Male

DRUGS (13)
  1. TRAMADOL. [Interacting]
     Active Substance: TRAMADOL
     Indication: PRODUCT USED FOR UNKNOWN INDICATION
     Route: 065
  2. OLANZAPINE. [Concomitant]
     Active Substance: OLANZAPINE
  3. CODEINE [Concomitant]
     Active Substance: CODEINE
  4. OXAZEPAM. [Interacting]
     Active Substance: OXAZEPAM
     Indication: PRODUCT USED FOR UNKNOWN INDICATION
     Route: 065
  5. OXYCODONE [Concomitant]
     Active Substance: OXYCODONE
  6. DIAZEPAM. [Suspect]
     Active Substance: DIAZEPAM
     Indication: OFF LABEL USE
     Route: 048
     Dates: start: 200906
  7. METHYLAMPHETAMINE [Concomitant]
     Active Substance: AMPHETAMINE
  8. CEPHALEXIN. [Concomitant]
     Active Substance: CEPHALEXIN
  9. AMOXICILLIN. [Concomitant]
     Active Substance: AMOXICILLIN
  10. ROXITHROMYCIN [Concomitant]
     Active Substance: ROXITHROMYCIN
  11. OXYCODONE [Concomitant]
     Active Substance: OXYCODONE
  12. DIAZEPAM. [Interacting]
     Active Substance: DIAZEPAM
     Indication: ANXIETY
  13. METHADONE [Interacting]
     Active Substance: METHADONE HYDROCHLORIDE
     Indication: DRUG WITHDRAWAL MAINTENANCE THERAPY
     Route: 065

REACTIONS (9)
  - Impaired self-care [Unknown]
  - Respiratory depression [Fatal]
  - Off label use [Unknown]
  - Asthma [Unknown]
  - Drug dependence [Unknown]
  - Pneumonia [Fatal]
  - Drug interaction [Fatal]
  - Lower respiratory tract infection [Unknown]
  - Drug abuse [Unknown]
